FAERS Safety Report 7284085-3 (Version None)
Quarter: 2011Q1

REPORT INFORMATION
  Report Type: 
  Country: None (occurrence: None)
  Receive Date: 20110209
  Receipt Date: 20110203
  Transmission Date: 20110831
  Serious: Yes (Other)
  Sender: FDA-Public Use
  Company Number: CH-PFIZER INC-2011026910

PATIENT
  Age: 64 Year

DRUGS (3)
  1. GABAPENTIN [Suspect]
     Indication: POLYNEUROPATHY
     Dosage: UNK
  2. TRYPTIZOL [Suspect]
     Indication: POLYNEUROPATHY
     Dosage: UNK
  3. PREGABALIN [Suspect]
     Indication: POLYNEUROPATHY
     Dosage: UNK

REACTIONS (1)
  - PARKINSONISM [None]
